FAERS Safety Report 8021336-1 (Version None)
Quarter: 2012Q1

REPORT INFORMATION
  Report Type: 
  Country: None (occurrence: None)
  Receive Date: 20120104
  Receipt Date: 20111224
  Transmission Date: 20120608
  Serious: Yes (Other)
  Sender: FDA-Public Use
  Company Number: US-BAYER-2011-032868

PATIENT
  Age: 27 Year
  Sex: Female
  Weight: 95.238 kg

DRUGS (10)
  1. ACETAMINOPHEN [Concomitant]
  2. PENICILLIN [Concomitant]
  3. PHENTERMINE [Concomitant]
     Indication: MEDICAL DIET
     Dosage: 30 MG
  4. LOVENOX [Concomitant]
  5. AMOXICILLIN [Concomitant]
  6. COUMADIN [Concomitant]
  7. ZITHROMAX [Concomitant]
  8. YASMIN [Suspect]
     Dosage: UNK
     Dates: start: 20060201, end: 20081001
  9. MOTRIN [Concomitant]
  10. IBUPROFEN (ADVIL) [Concomitant]

REACTIONS (4)
  - DEEP VEIN THROMBOSIS [None]
  - MENTAL DISORDER [None]
  - PAIN [None]
  - INJURY [None]
